FAERS Safety Report 11823827 (Version 3)
Quarter: 2016Q2

REPORT INFORMATION
  Report Type: Report from Study
  Country: US (occurrence: US)
  Receive Date: 20151210
  Receipt Date: 20160406
  Transmission Date: 20160815
  Serious: Yes (Other)
  Sender: FDA-Public Use
  Company Number: US-JNJFOC-20150805503

PATIENT
  Age: 42 Year
  Sex: Female
  Weight: 95.26 kg

DRUGS (14)
  1. PREDNISONE. [Concomitant]
     Active Substance: PREDNISONE
     Indication: SPONDYLOARTHROPATHY
     Dosage: 10 TO 20MG DAILY
     Route: 065
     Dates: start: 201412, end: 201508
  2. REMICADE [Suspect]
     Active Substance: INFLIXIMAB
     Indication: SPONDYLOARTHROPATHY
     Route: 042
     Dates: start: 201503, end: 20150521
  3. IBUPROFEN. [Concomitant]
     Active Substance: IBUPROFEN
     Indication: HEADACHE
     Dosage: STARTED 6 YEARS PRIOR TO THIS REPORT.
     Route: 065
  4. PREDNISONE. [Concomitant]
     Active Substance: PREDNISONE
     Indication: SPONDYLOARTHROPATHY
     Dosage: HIGH DOSES LIKE 60 AND 40 MG
     Route: 065
  5. ZANTAC [Concomitant]
     Active Substance: RANITIDINE HYDROCHLORIDE
     Route: 048
  6. PREDNISONE. [Concomitant]
     Active Substance: PREDNISONE
     Indication: SARCOIDOSIS
     Dosage: 10 TO 20MG DAILY
     Route: 065
     Dates: start: 201412, end: 201508
  7. REMICADE [Suspect]
     Active Substance: INFLIXIMAB
     Indication: ANKYLOSING SPONDYLITIS
     Dosage: 3 TO 5 MG/KG. 4 DOSES
     Route: 042
     Dates: start: 201412, end: 201508
  8. PREDNISONE. [Concomitant]
     Active Substance: PREDNISONE
     Indication: UVEITIS
     Dosage: HIGH DOSES LIKE 60 AND 40 MG
     Route: 065
  9. PREDNISONE. [Concomitant]
     Active Substance: PREDNISONE
     Indication: SARCOIDOSIS
     Dosage: HIGH DOSES LIKE 60 AND 40 MG
     Route: 065
  10. REMICADE [Suspect]
     Active Substance: INFLIXIMAB
     Indication: SPONDYLOARTHROPATHY
     Dosage: 3 TO 5 MG/KG. 4 DOSES
     Route: 042
     Dates: start: 201412, end: 201508
  11. REMICADE [Suspect]
     Active Substance: INFLIXIMAB
     Indication: ANKYLOSING SPONDYLITIS
     Route: 042
     Dates: start: 201503, end: 20150521
  12. REMICADE [Suspect]
     Active Substance: INFLIXIMAB
     Indication: SARCOIDOSIS
     Route: 042
     Dates: start: 201503, end: 20150521
  13. PREDNISONE. [Concomitant]
     Active Substance: PREDNISONE
     Indication: UVEITIS
     Dosage: 10 TO 20MG DAILY
     Route: 065
     Dates: start: 201412, end: 201508
  14. REMICADE [Suspect]
     Active Substance: INFLIXIMAB
     Indication: SARCOIDOSIS
     Dosage: 3 TO 5 MG/KG. 4 DOSES
     Route: 042
     Dates: start: 201412, end: 201508

REACTIONS (14)
  - Dyspnoea [Unknown]
  - Abasia [Unknown]
  - Dyskinesia [Unknown]
  - Rash [Recovered/Resolved]
  - Arthritis [Recovering/Resolving]
  - Hypoaesthesia [Unknown]
  - Fatigue [Unknown]
  - Arthralgia [Recovering/Resolving]
  - Hypersensitivity [Recovering/Resolving]
  - Product use issue [Unknown]
  - Myalgia [Unknown]
  - Visual impairment [Unknown]
  - Drug dose omission [Not Recovered/Not Resolved]
  - Off label use [Unknown]

NARRATIVE: CASE EVENT DATE: 2015
